FAERS Safety Report 9632173 (Version 1)
Quarter: 2013Q4

REPORT INFORMATION
  Report Type: Spontaneous
  Country: US (occurrence: None)
  Receive Date: 20131017
  Receipt Date: 20131017
  Transmission Date: 20140711
  Serious: Yes (Death, Life-Threatening, Hospitalization)
  Sender: FDA-Public Use
  Company Number: None

PATIENT
  Age: 60 Year
  Sex: Male
  Weight: 54.43 kg

DRUGS (12)
  1. AMIODARONE 200MG [Suspect]
     Indication: CARDIAC FAILURE CONGESTIVE
     Dates: start: 20121211, end: 20130204
  2. AMIODARONE 200MG [Suspect]
     Indication: WEIGHT DECREASED
     Dates: start: 20121211, end: 20130204
  3. AMIODARONE [Concomitant]
  4. SIMVASTATIN [Concomitant]
  5. XANAX [Concomitant]
  6. ENALAPRIL [Concomitant]
  7. LASIX [Concomitant]
  8. METOPROLOL [Concomitant]
  9. IED [Concomitant]
  10. VIT C [Concomitant]
  11. VIT D [Concomitant]
  12. FOLIC ACID [Concomitant]

REACTIONS (3)
  - Toxicity to various agents [None]
  - Dyspnoea [None]
  - Renal disorder [None]
